FAERS Safety Report 4611960-8 (Version None)
Quarter: 2005Q2

REPORT INFORMATION
  Report Type: 
  Country: None (occurrence: None)
  Receive Date: 20050308
  Receipt Date: 20050117
  Transmission Date: 20051028
  Serious: Yes (Other)
  Sender: FDA-Public Use
  Company Number: 2005UW00801

PATIENT
  Age: 82 Year
  Sex: Male
  Weight: 86.182 kg

DRUGS (9)
  1. CRESTOR [Suspect]
     Indication: BLOOD CHOLESTEROL INCREASED
     Dosage: 10 MG PO
     Route: 048
     Dates: start: 20030601
  2. PLAVIX [Concomitant]
  3. NIASPAN [Concomitant]
  4. ATACAND [Concomitant]
  5. DIGOXIN [Concomitant]
  6. FUROSEMIDE [Concomitant]
  7. TOPROL-XL [Concomitant]
  8. POTASSIUM CHLORIDE [Concomitant]
  9. FOLIC ACID [Concomitant]

REACTIONS (2)
  - MYALGIA [None]
  - OEDEMA PERIPHERAL [None]
